FAERS Safety Report 5324398-5 (Version None)
Quarter: 2007Q2

REPORT INFORMATION
  Report Type: 
  Country: None (occurrence: None)
  Receive Date: 20070514
  Receipt Date: 20070418
  Transmission Date: 20071010
  Serious: Yes (Other)
  Sender: FDA-Public Use
  Company Number: US-PFIZER INC-2006150172

PATIENT
  Sex: Female
  Weight: 119.3 kg

DRUGS (5)
  1. BEXTRA [Suspect]
     Indication: PAIN
     Route: 048
  2. BEXTRA [Suspect]
     Indication: INFLAMMATION
  3. BEXTRA [Suspect]
     Indication: ARTHRALGIA
  4. BEXTRA [Suspect]
     Indication: PAIN IN EXTREMITY
  5. BEXTRA [Suspect]
     Indication: BURSITIS

REACTIONS (1)
  - CEREBROVASCULAR ACCIDENT [None]
